FAERS Safety Report 5846773-2 (Version None)
Quarter: 2008Q3

REPORT INFORMATION
  Report Type: 
  Country: None (occurrence: None)
  Receive Date: 20080815
  Receipt Date: 20080804
  Transmission Date: 20090109
  Serious: Yes (Hospitalization, Disabling)
  Sender: FDA-Public Use
  Company Number: US-MERCK-0808USA01936

PATIENT
  Age: 29 Year
  Sex: Female

DRUGS (7)
  1. MAXALT [Suspect]
     Indication: HEADACHE
     Route: 048
  2. HORMONAL CONTRACEPTIVES (UNSPECIFIED) [Concomitant]
     Indication: DYSMENORRHOEA
     Route: 065
  3. AMERGE [Concomitant]
     Route: 065
  4. LORTAB [Concomitant]
     Indication: HEADACHE
     Route: 048
     Dates: start: 20010101
  5. IMITREX [Concomitant]
     Indication: HEADACHE
     Route: 065
  6. MOTRIN [Concomitant]
     Indication: HEADACHE
     Route: 065
  7. ZYPREXA [Concomitant]
     Route: 065
     Dates: start: 20020101

REACTIONS (5)
  - DEPRESSION [None]
  - DRUG DETOXIFICATION [None]
  - MIGRAINE [None]
  - NO THERAPEUTIC RESPONSE [None]
  - REBOUND EFFECT [None]
